FAERS Safety Report 10768120 (Version 1)
Quarter: 2015Q1

REPORT INFORMATION
  Report Type: Spontaneous
  Country: JP (occurrence: JP)
  Receive Date: 20150205
  Receipt Date: 20150205
  Transmission Date: 20150721
  Serious: Yes (Other)
  Sender: FDA-Public Use
  Company Number: JP-JNJFOC-20150200708

PATIENT
  Sex: Female

DRUGS (1)
  1. LOPEMIN [Suspect]
     Active Substance: LOPERAMIDE HYDROCHLORIDE
     Indication: IRRITABLE BOWEL SYNDROME
     Route: 048

REACTIONS (4)
  - Faeces discoloured [Unknown]
  - Hot flush [Unknown]
  - Bacterial infection [Recovered/Resolved]
  - Bacterial diarrhoea [Unknown]
